FAERS Safety Report 9223332 (Version 5)
Quarter: 2013Q3

REPORT INFORMATION
  Report Type: Report from Study
  Country: US (occurrence: US)
  Receive Date: 20130410
  Receipt Date: 20130906
  Transmission Date: 20140515
  Serious: Yes (Other)
  Sender: FDA-Public Use
  Company Number: US-JNJFOC-20130403602

PATIENT
  Age: 83 Year
  Sex: Male
  Weight: 84.82 kg

DRUGS (8)
  1. XARELTO [Suspect]
     Indication: CEREBROVASCULAR ACCIDENT PROPHYLAXIS
     Route: 048
     Dates: start: 20130326
  2. XARELTO [Suspect]
     Indication: ATRIAL FIBRILLATION
     Route: 048
     Dates: start: 20130326
  3. LIPITOR [Concomitant]
     Indication: BLOOD CHOLESTEROL
     Route: 048
  4. ASPIRIN [Concomitant]
     Route: 048
  5. TOPROL [Concomitant]
     Route: 065
  6. GLUCOSAMINE [Concomitant]
     Route: 065
  7. FISH OIL [Concomitant]
     Route: 065
  8. MULTIVITAMINS [Concomitant]
     Route: 065

REACTIONS (6)
  - Haemorrhage [Recovering/Resolving]
  - Sputum abnormal [Not Recovered/Not Resolved]
  - Trance [Unknown]
  - Oral herpes [Recovering/Resolving]
  - Lower respiratory tract infection [Not Recovered/Not Resolved]
  - Drug dose omission [Not Recovered/Not Resolved]
